FAERS Safety Report 11561312 (Version 1)
Quarter: 2015Q3

REPORT INFORMATION
  Report Type: Spontaneous
  Country: US (occurrence: US)
  Receive Date: 20150916
  Receipt Date: 20150916
  Transmission Date: 20151125
  Serious: No
  Sender: FDA-Public Use
  Company Number: US-ELI_LILLY_AND_COMPANY-US200810006142

PATIENT
  Age: 76 Year
  Sex: Female

DRUGS (2)
  1. FORTEO [Suspect]
     Active Substance: TERIPARATIDE
     Dosage: UNK, UNK
     Dates: end: 200810
  2. FORTEO [Suspect]
     Active Substance: TERIPARATIDE
     Dates: start: 20081019

REACTIONS (5)
  - Dizziness [Not Recovered/Not Resolved]
  - Ear infection [Unknown]
  - Heart rate increased [Recovered/Resolved]
  - Hypersensitivity [Unknown]
  - Blood pressure increased [Recovered/Resolved]

NARRATIVE: CASE EVENT DATE: 200809
